FAERS Safety Report 14921718 (Version 1)
Quarter: 2018Q2

REPORT INFORMATION
  Report Type: Spontaneous
  Country: US (occurrence: US)
  Receive Date: 20180522
  Receipt Date: 20180522
  Transmission Date: 20180711
  Serious: Yes (Hospitalization)
  Sender: FDA-Public Use
  Company Number: US-TORRENT-00006135

PATIENT
  Age: 72 Year
  Sex: Female
  Weight: 61 kg

DRUGS (3)
  1. ROSUVASTATIN CALCIUM TABLET [Suspect]
     Active Substance: ROSUVASTATIN CALCIUM
     Indication: BLOOD CHOLESTEROL INCREASED
     Dosage: NDC: 13668-181-90
     Dates: start: 201711, end: 20180308
  2. DEXAMETHASONE. [Concomitant]
     Active Substance: DEXAMETHASONE
     Indication: PLASMA CELL MYELOMA
     Dosage: 10 TABLETS BY MOUTH ONCE EVERY WEEK
     Route: 048
  3. KYPROLIS [Concomitant]
     Active Substance: CARFILZOMIB
     Indication: PLASMA CELL MYELOMA
     Dosage: UNKNOWN

REACTIONS (8)
  - Musculoskeletal pain [Recovering/Resolving]
  - Product substitution issue [Unknown]
  - Emotional distress [Unknown]
  - Gait inability [Unknown]
  - Back pain [Recovering/Resolving]
  - Urine abnormality [Recovering/Resolving]
  - Myalgia [Recovering/Resolving]
  - Crying [Unknown]

NARRATIVE: CASE EVENT DATE: 20171208
